FAERS Safety Report 24802115 (Version 2)
Quarter: 2025Q2

REPORT INFORMATION
  Report Type: Report from Study
  Country: CA (occurrence: CA)
  Receive Date: 20250103
  Receipt Date: 20250423
  Transmission Date: 20250716
  Serious: Yes (Other)
  Sender: TAKEDA
  Company Number: CA-TAKEDA-2024TUS130996

PATIENT
  Age: 27 Year
  Sex: Female

DRUGS (9)
  1. VEDOLIZUMAB [Suspect]
     Active Substance: VEDOLIZUMAB
     Indication: Colitis ulcerative
  2. VEDOLIZUMAB [Suspect]
     Active Substance: VEDOLIZUMAB
  3. Cortiment [Concomitant]
  4. MESALAMINE [Concomitant]
     Active Substance: MESALAMINE
  5. VITAMIN D [Concomitant]
     Active Substance: VITAMIN D NOS
  6. VITAMIN K [Concomitant]
     Active Substance: PHYTONADIONE
  7. VITAMIN B [Concomitant]
     Active Substance: VITAMIN B
  8. OMEGA 3 [Concomitant]
     Active Substance: CAPSAICIN
  9. ATIVAN [Concomitant]
     Active Substance: LORAZEPAM

REACTIONS (5)
  - Heart rate irregular [Unknown]
  - Muscle tightness [Unknown]
  - Musculoskeletal discomfort [Unknown]
  - Stress [Unknown]
  - Blood pressure increased [Unknown]

NARRATIVE: CASE EVENT DATE: 20241222
